FAERS Safety Report 25790570 (Version 1)
Quarter: 2025Q3

REPORT INFORMATION
  Report Type: Spontaneous
  Country: AU (occurrence: AU)
  Receive Date: 20250911
  Receipt Date: 20250911
  Transmission Date: 20251020
  Serious: Yes (Other)
  Sender: DAIICHI
  Company Number: AU-AstraZeneca-CH-00942836A

PATIENT
  Age: 50 Year
  Sex: Female

DRUGS (1)
  1. TRASTUZUMAB DERUXTECAN [Suspect]
     Active Substance: TRASTUZUMAB DERUXTECAN
     Indication: HER2 gene amplification
     Dosage: 5.4 MILLIGRAM PER MILLILITRE, ONCE EVERY 3 WK
     Route: 042

REACTIONS (3)
  - Neutrophil count decreased [Recovered/Resolved]
  - Vertebral lesion [Recovering/Resolving]
  - Lymphopenia [Recovered/Resolved]
